FAERS Safety Report 4420886-4 (Version None)
Quarter: 2004Q3

REPORT INFORMATION
  Report Type: 
  Country: None (occurrence: None)
  Receive Date: 20040804
  Receipt Date: 20040722
  Transmission Date: 20050211
  Serious: Yes (Death)
  Sender: FDA-Public Use
  Company Number: GB-JNJFOC-20040607204

PATIENT
  Age: 63 Year
  Sex: Female

DRUGS (11)
  1. REMICADE [Suspect]
     Indication: RHEUMATOID ARTHRITIS
     Dosage: 210 MG, INTRAVENOUS
     Route: 042
     Dates: start: 20031110, end: 20040620
  2. THYROXINE (LEVOTHYROXINE SODIUM) [Concomitant]
  3. METHOTREXATE [Concomitant]
  4. FOLIC ACID [Concomitant]
  5. ETODOLAC [Concomitant]
  6. PREDNISOLONE [Concomitant]
  7. CALCICHEW (CALCIUM CARBONATE) [Concomitant]
  8. ALENDRONIC ACID (ALENDRONIC ACID) [Concomitant]
  9. ATENOLOL [Concomitant]
  10. RIFINAH (RIFINAH) [Concomitant]
  11. RANITIDINE [Concomitant]

REACTIONS (2)
  - METASTATIC NEOPLASM [None]
  - SQUAMOUS CELL CARCINOMA [None]
